FAERS Safety Report 6345624-X (Version None)
Quarter: 2009Q3

REPORT INFORMATION
  Report Type: 
  Country: None (occurrence: None)
  Receive Date: 20090909
  Receipt Date: 20090831
  Transmission Date: 20100115
  Serious: Yes (Other)
  Sender: FDA-Public Use
  Company Number: BR-ROCHE-654197

PATIENT
  Age: 21 Year
  Sex: Female
  Weight: 50 kg

DRUGS (2)
  1. ROACUTAN [Suspect]
     Indication: ACNE
     Route: 048
     Dates: start: 20090516, end: 20090601
  2. GARDENAL [Interacting]
     Indication: CONVULSION
     Route: 065

REACTIONS (3)
  - CONVULSION [None]
  - DRUG INTERACTION [None]
  - ROAD TRAFFIC ACCIDENT [None]
